FAERS Safety Report 24168652 (Version 1)
Quarter: 2024Q3

REPORT INFORMATION
  Report Type: Spontaneous
  Country: US (occurrence: None)
  Receive Date: 20240802
  Receipt Date: 20240802
  Transmission Date: 20241017
  Serious: Yes (Hospitalization, Disabling)
  Sender: Public
  Company Number: None

PATIENT
  Age: 55 Year
  Sex: Female
  Weight: 81 kg

DRUGS (5)
  1. PLANTAR WART REMOVERS [Suspect]
     Active Substance: SALICYLIC ACID
     Indication: Skin papilloma
     Dosage: 1 PATCH TOPICAL ?
     Route: 061
     Dates: start: 20240201
  2. GABAPENTIN [Concomitant]
     Active Substance: GABAPENTIN
  3. monjero [Concomitant]
  4. ACIPHEX [Concomitant]
     Active Substance: RABEPRAZOLE SODIUM
  5. SYNTHROID [Concomitant]
     Active Substance: LEVOTHYROXINE SODIUM

REACTIONS (3)
  - Application site burn [None]
  - Toe amputation [None]
  - Osteomyelitis [None]

NARRATIVE: CASE EVENT DATE: 20240202
